FAERS Safety Report 14265445 (Version 1)
Quarter: 2017Q4

REPORT INFORMATION
  Report Type: Report from Study
  Country: US (occurrence: BR)
  Receive Date: 20171208
  Receipt Date: 20171208
  Transmission Date: 20180321
  Serious: Yes (Life-Threatening, Hospitalization, Other)
  Sender: FDA-Public Use
  Company Number: US-SUNOVION-2017SUN005178

PATIENT
  Sex: Male
  Weight: 117 kg

DRUGS (1)
  1. INDACATEROL AND GLYCOPYRROLATE [Suspect]
     Active Substance: GLYCOPYRROLATE\INDACATEROL MALEATE
     Indication: CHRONIC OBSTRUCTIVE PULMONARY DISEASE
     Dosage: 1 DF, QD 110/50UG
     Route: 065
     Dates: start: 201708

REACTIONS (3)
  - Chest pain [Recovered/Resolved]
  - Apparent death [Unknown]
  - Dyspnoea [Recovered/Resolved]
